FAERS Safety Report 4487794-4 (Version None)
Quarter: 2004Q4

REPORT INFORMATION
  Report Type: 
  Country: None (occurrence: None)
  Receive Date: 20041027
  Receipt Date: 20041027
  Transmission Date: 20050328
  Serious: Yes (Other)
  Sender: FDA-Public Use
  Company Number: None

PATIENT
  Age: 24 Year
  Sex: Female
  Weight: 61.2356 kg

DRUGS (1)
  1. TIOCONAZOLE [Suspect]
     Indication: VAGINAL MYCOSIS
     Dosage: 1 NIGHT   VAGINAL
     Route: 067
     Dates: start: 20041024, end: 20041025

REACTIONS (8)
  - APPLICATION SITE REACTION [None]
  - INFLAMMATION [None]
  - TENDERNESS [None]
  - VAGINAL MUCOSAL BLISTERING [None]
  - VAGINITIS [None]
  - VULVAL DISORDER [None]
  - VULVAL ERYTHEMA [None]
  - VULVAL OEDEMA [None]
